FAERS Safety Report 8403343-X (Version None)
Quarter: 2012Q2

REPORT INFORMATION
  Report Type: 
  Country: None (occurrence: None)
  Receive Date: 20120323
  Receipt Date: 20110809
  Transmission Date: 20120825
  Serious: Yes (Other)
  Sender: FDA-Public Use
  Company Number: 163-21880-11043765

PATIENT

DRUGS (11)
  1. REVLIMID [Suspect]
     Indication: MULTIPLE MYELOMA
     Dosage: 25 MG, DAILY, PO, 20 MG, DAILY, PO, 25 MG, DAILY FOR 21 DAYS, PO
     Route: 048
     Dates: start: 20110201
  2. REVLIMID [Suspect]
     Indication: MULTIPLE MYELOMA
     Dosage: 25 MG, DAILY, PO, 20 MG, DAILY, PO, 25 MG, DAILY FOR 21 DAYS, PO
     Route: 048
     Dates: start: 20081001
  3. REVLIMID [Suspect]
     Indication: MULTIPLE MYELOMA
     Dosage: 25 MG, DAILY, PO, 20 MG, DAILY, PO, 25 MG, DAILY FOR 21 DAYS, PO
     Route: 048
     Dates: start: 20101001
  4. POTASSIUM(POTASSIUM)(PILL) [Concomitant]
  5. AREDIA(PAMIDRONATE DISODIUM) :1) IV [Concomitant]
  6. CYTOXAN [Suspect]
     Indication: MULTIPLE MYELOMA
     Dosage: 5, ONCE A WEEK X 3 WEEKS/1 WEEK OFF, PO
     Route: 048
  7. METIPRANOLOL(METIPRANOLOL)(DROPS) [Concomitant]
  8. LASIX [Concomitant]
  9. DEXAMETHASONE [Concomitant]
  10. ASPIRIN [Concomitant]
  11. XALATAN(LATANOPROST) (DROPS) [Concomitant]

REACTIONS (3)
  - WHITE BLOOD CELL COUNT DECREASED [None]
  - OEDEMA PERIPHERAL [None]
  - BONE MARROW FAILURE [None]
